FAERS Safety Report 8285693-3 (Version None)
Quarter: 2012Q2

REPORT INFORMATION
  Report Type: 
  Country: None (occurrence: None)
  Receive Date: 20120413
  Receipt Date: 20120405
  Transmission Date: 20120825
  Serious: Yes (Hospitalization, Other)
  Sender: FDA-Public Use
  Company Number: US-AMGEN-USASP2011065869

PATIENT
  Age: 51 Year
  Sex: Female
  Weight: 105.22 kg

DRUGS (2)
  1. ENBREL [Suspect]
     Indication: RHEUMATOID ARTHRITIS
     Dosage: 50 MG, QWK
     Dates: start: 20041204
  2. ARAVA [Concomitant]
     Dosage: 20 MG, QD

REACTIONS (8)
  - RHEUMATOID ARTHRITIS [None]
  - PYREXIA [None]
  - HEPATITIS C [None]
  - DIZZINESS [None]
  - OROPHARYNGEAL PAIN [None]
  - SYNOVITIS [None]
  - HYPERTENSION [None]
  - COUGH [None]
